FAERS Safety Report 18141092 (Version 1)
Quarter: 2020Q3

REPORT INFORMATION
  Report Type: Spontaneous
  Country: US (occurrence: US)
  Receive Date: 20200812
  Receipt Date: 20200812
  Transmission Date: 20201103
  Serious: Yes (Hospitalization, Other)
  Sender: FDA-Public Use
  Company Number: US-PFIZER INC-2020307168

PATIENT
  Age: 75 Year
  Sex: Female
  Weight: 90.72 kg

DRUGS (2)
  1. LYRICA [Suspect]
     Active Substance: PREGABALIN
     Indication: LIMB DISCOMFORT
     Dosage: UNK
     Dates: end: 2018
  2. LYRICA [Suspect]
     Active Substance: PREGABALIN
     Indication: BACK DISORDER

REACTIONS (14)
  - Illness [Unknown]
  - Pain in extremity [Unknown]
  - Influenza like illness [Unknown]
  - Sepsis [Unknown]
  - Peripheral swelling [Not Recovered/Not Resolved]
  - Joint swelling [Not Recovered/Not Resolved]
  - Product use in unapproved indication [Unknown]
  - Limb discomfort [Unknown]
  - Thyroid disorder [Unknown]
  - Eye disorder [Unknown]
  - Malignant melanoma [Unknown]
  - Off label use [Unknown]
  - Breast cancer [Unknown]
  - Thrombosis [Unknown]

NARRATIVE: CASE EVENT DATE: 202008
